FAERS Safety Report 7302839-1 (Version None)
Quarter: 2011Q1

REPORT INFORMATION
  Report Type: 
  Country: None (occurrence: None)
  Receive Date: 20110218
  Receipt Date: 20110209
  Transmission Date: 20110831
  Serious: Yes (Hospitalization, Other)
  Sender: FDA-Public Use
  Company Number: US-B.I. PHARMACEUTICALS,INC./RIDGEFIELD-2011-BP-02663BP

PATIENT
  Sex: Male

DRUGS (7)
  1. FLOMAX [Suspect]
     Indication: PROSTATIC DISORDER
  2. FINASTERIDE [Concomitant]
     Indication: PROSTATIC DISORDER
  3. FISH OIL [Concomitant]
     Indication: PROPHYLAXIS
  4. VITAMIN D [Concomitant]
     Indication: PROPHYLAXIS
  5. AVASTIN [Suspect]
  6. INTRAFERON [Suspect]
  7. MULTIVITAMIN [Concomitant]
     Indication: PROPHYLAXIS

REACTIONS (8)
  - ARTHROPATHY [None]
  - PROTEIN C DEFICIENCY [None]
  - RENAL CANCER [None]
  - ATRIAL FIBRILLATION [None]
  - SLEEP APNOEA SYNDROME [None]
  - PULMONARY EMBOLISM [None]
  - MUSCULOSKELETAL DISCOMFORT [None]
  - CARDIAC DISORDER [None]
